FAERS Safety Report 5275893-9 (Version None)
Quarter: 2007Q1

REPORT INFORMATION
  Report Type: 
  Country: None (occurrence: None)
  Receive Date: 20070326
  Receipt Date: 20070315
  Transmission Date: 20070707
  Serious: Yes (Other)
  Sender: FDA-Public Use
  Company Number: 2007AC00337

PATIENT
  Sex: Male
  Weight: 70 kg

DRUGS (3)
  1. ZOLADEX [Suspect]
     Indication: PROSTATE CANCER
     Route: 058
  2. OMNIC OLAS [Concomitant]
     Indication: PROSTATE CANCER
  3. METOPROLOL SUCCINATE [Concomitant]
     Indication: HYPERTENSION

REACTIONS (2)
  - MUSCULAR WEAKNESS [None]
  - PARAESTHESIA [None]
